FAERS Safety Report 5162279-0 (Version None)
Quarter: 2006Q4

REPORT INFORMATION
  Report Type: 
  Country: None (occurrence: None)
  Receive Date: 20060919
  Receipt Date: 20060620
  Transmission Date: 20070319
  Serious: No
  Sender: FDA-Public Use
  Company Number: 2006US001414

PATIENT
  Age: 83 Year
  Sex: Male

DRUGS (3)
  1. VESICARE [Suspect]
     Indication: HYPERTONIC BLADDER
     Dosage: ORAL
     Route: 048
     Dates: start: 20060601, end: 20060601
  2. ZOCOR [Concomitant]
  3. TRAVATAN [Concomitant]

REACTIONS (3)
  - EYE IRRITATION [None]
  - EYE SWELLING [None]
  - SOMNOLENCE [None]
